FAERS Safety Report 21846943 (Version 1)
Quarter: 2023Q1

REPORT INFORMATION
  Report Type: Spontaneous
  Country: US (occurrence: None)
  Receive Date: 20230110
  Receipt Date: 20230110
  Transmission Date: 20230418
  Serious: No
  Sender: FDA-Public Use
  Company Number: None

PATIENT
  Age: 28 Year
  Sex: Female
  Weight: 96 kg

DRUGS (1)
  1. NIRMATRELVIR\RITONAVIR [Suspect]
     Active Substance: NIRMATRELVIR\RITONAVIR
     Indication: Upper respiratory tract infection
     Dosage: 1 TAB BID PO
     Route: 048
     Dates: start: 20221221, end: 20221223

REACTIONS (3)
  - Dysgeusia [None]
  - Pharyngeal swelling [None]
  - Therapy cessation [None]

NARRATIVE: CASE EVENT DATE: 20221222
